FAERS Safety Report 18548489 (Version 1)
Quarter: 2020Q4

REPORT INFORMATION
  Report Type: Spontaneous
  Country: DE (occurrence: DE)
  Receive Date: 20201125
  Receipt Date: 20201125
  Transmission Date: 20210114
  Serious: Yes (Hospitalization)
  Sender: FDA-Public Use
  Company Number: DE-009507513-2011DEU009755

PATIENT
  Age: 70 Year
  Sex: Female

DRUGS (3)
  1. BEXTRA [Suspect]
     Active Substance: VALDECOXIB
     Indication: OSTEOARTHRITIS
     Route: 048
     Dates: start: 20030606, end: 20030620
  2. LORZAAR PROTECT 50MG FILMTABLETTEN [Suspect]
     Active Substance: LOSARTAN
     Indication: ESSENTIAL HYPERTENSION
     Route: 048
     Dates: end: 20030620
  3. LISINOPRIL. [Suspect]
     Active Substance: LISINOPRIL
     Indication: ESSENTIAL HYPERTENSION
     Dosage: 20 MILLIGRAM, QD
     Route: 048
     Dates: end: 20030620

REACTIONS (2)
  - Dermatitis allergic [Recovered/Resolved]
  - Angioedema [Recovered/Resolved]

NARRATIVE: CASE EVENT DATE: 20030620
